FAERS Safety Report 15490115 (Version 2)
Quarter: 2018Q4

REPORT INFORMATION
  Report Type: Spontaneous
  Country: US (occurrence: US)
  Receive Date: 20181011
  Receipt Date: 20181016
  Transmission Date: 20190205
  Serious: No
  Sender: FDA-Public Use
  Company Number: US-SA-2018SA046360

PATIENT
  Sex: Female

DRUGS (1)
  1. AUBAGIO [Suspect]
     Active Substance: TERIFLUNOMIDE
     Indication: MULTIPLE SCLEROSIS
     Dosage: 14 MG,QD
     Route: 048
     Dates: start: 201708

REACTIONS (8)
  - Micturition urgency [Unknown]
  - Condition aggravated [Unknown]
  - Asthenia [Unknown]
  - Alopecia [Unknown]
  - Headache [Unknown]
  - Depression [Unknown]
  - Nasopharyngitis [Unknown]
  - Malaise [Unknown]
